FAERS Safety Report 4444283-0 (Version None)
Quarter: 2004Q3

REPORT INFORMATION
  Report Type: 
  Country: None (occurrence: None)
  Receive Date: 20040813
  Receipt Date: 20040614
  Transmission Date: 20050211
  Serious: Yes (Other)
  Sender: FDA-Public Use
  Company Number: US-JNJFOC-20040603491

PATIENT
  Age: 9 Year
  Sex: Male
  Weight: 27.2158 kg

DRUGS (2)
  1. MOTRIN [Suspect]
     Indication: PYREXIA
     Dosage: ,  1 IN 1 TOTAL, ORAL
     Route: 048
     Dates: start: 20040611, end: 20040611
  2. CLARITIN [Concomitant]

REACTIONS (2)
  - ANAPHYLACTIC REACTION [None]
  - EPISTAXIS [None]
